FAERS Safety Report 20625493 (Version 2)
Quarter: 2022Q2

REPORT INFORMATION
  Report Type: Spontaneous
  Country: US (occurrence: US)
  Receive Date: 20220323
  Receipt Date: 20220422
  Transmission Date: 20220721
  Serious: Yes (Hospitalization)
  Sender: FDA-Public Use
  Company Number: US-DECIPHERA PHARMACEUTICALS LLC-2022US000223

PATIENT
  Sex: Male

DRUGS (1)
  1. QINLOCK [Suspect]
     Active Substance: RIPRETINIB
     Indication: Gastrointestinal stromal tumour
     Dosage: 100 MILLIGRAM, QD
     Route: 048
     Dates: start: 20220131, end: 2022

REACTIONS (9)
  - Arrhythmia [Unknown]
  - Haematochezia [Unknown]
  - Intestinal haemorrhage [Unknown]
  - Haemoglobin decreased [Unknown]
  - Neoplasm progression [Unknown]
  - Asthenia [Unknown]
  - Abdominal pain [Unknown]
  - Decreased appetite [Unknown]
  - Underdose [Unknown]

NARRATIVE: CASE EVENT DATE: 20220101
